FAERS Safety Report 5521772-9 (Version None)
Quarter: 2007Q4

REPORT INFORMATION
  Report Type: 
  Country: None (occurrence: None)
  Receive Date: 20071120
  Receipt Date: 20071109
  Transmission Date: 20080405
  Serious: Yes (Hospitalization)
  Sender: FDA-Public Use
  Company Number: US-JNJFOC-20071104092

PATIENT
  Sex: Female
  Weight: 72.58 kg

DRUGS (6)
  1. REMICADE [Suspect]
     Indication: SPONDYLOARTHROPATHY
     Route: 042
  2. REMICADE [Suspect]
     Indication: AUTOIMMUNE DISORDER
     Route: 042
  3. ATENOLOL [Concomitant]
  4. PREVACID [Concomitant]
  5. DURAGESIC-100 [Concomitant]
  6. ZYRTEC [Concomitant]

REACTIONS (3)
  - DIARRHOEA [None]
  - NAUSEA [None]
  - VOMITING [None]
